FAERS Safety Report 9296232 (Version 2)
Quarter: 2014Q2

REPORT INFORMATION
  Report Type: Report from Study
  Country: US (occurrence: US)
  Receive Date: 20130517
  Receipt Date: 20140521
  Transmission Date: 20141212
  Serious: Yes (Hospitalization, Other)
  Sender: FDA-Public Use
  Company Number: US-US-EMD SERONO, INC.-7211041

PATIENT
  Age: 57 Year
  Sex: Female
  Weight: 45 kg

DRUGS (3)
  1. REBIF [Suspect]
     Indication: MULTIPLE SCLEROSIS
     Route: 058
     Dates: start: 20090831
  2. PNEUMOVAX [Concomitant]
     Indication: PNEUMONIA
  3. INFLUENZA VACCINE [Concomitant]
     Indication: ANTIVIRAL PROPHYLAXIS

REACTIONS (14)
  - Myocardial infarction [Recovered/Resolved]
  - Atrioventricular block [Recovered/Resolved]
  - Cardiac failure congestive [Recovering/Resolving]
  - Disorientation [Recovered/Resolved]
  - Hallucination [Recovered/Resolved]
  - Duodenitis [Unknown]
  - Ulcer haemorrhage [Unknown]
  - Blood count abnormal [Unknown]
  - Pneumonia [Recovered/Resolved]
  - Blood potassium decreased [Unknown]
  - Diarrhoea [Unknown]
  - Herpes zoster [Recovering/Resolving]
  - Multiple sclerosis [Not Recovered/Not Resolved]
  - Asthenia [Not Recovered/Not Resolved]
